FAERS Safety Report 4643727-9 (Version None)
Quarter: 2005Q2

REPORT INFORMATION
  Report Type: 
  Country: None (occurrence: None)
  Receive Date: 20050425
  Receipt Date: 20050413
  Transmission Date: 20051028
  Serious: Yes (Other)
  Sender: FDA-Public Use
  Company Number: US-BRISTOL-MYERS SQUIBB COMPANY-12931994

PATIENT
  Age: 37 Year
  Sex: Female
  Weight: 57 kg

DRUGS (13)
  1. TAXOL [Suspect]
     Indication: METASTATIC NEOPLASM
     Dosage: ALONG WITH PACLITAXEL 70 MG IV ONCE A WEEK X 5 DOSES
     Route: 042
     Dates: start: 20050125, end: 20050412
  2. RADIATION THERAPY [Concomitant]
  3. DECADRON [Concomitant]
     Indication: PREMEDICATION
     Dosage: 8 MG ADMINISTERED THE NIGHT PRIOR TO PACLITAXEL INFUSION
     Route: 042
  4. ALOXI [Concomitant]
     Indication: PREMEDICATION
     Route: 042
  5. BENADRYL [Concomitant]
     Indication: PREMEDICATION
  6. ZANTAC [Concomitant]
     Indication: PREMEDICATION
  7. CARBOPLATIN [Concomitant]
     Indication: METASTATIC NEOPLASM
     Dosage: 230 MG ADMINISTERED FOLLOWING PACLITAXEL 70 MG ONCE WEEKLY TREATMENTS
     Route: 042
  8. ETOPOSIDE [Concomitant]
     Indication: METASTATIC NEOPLASM
     Dosage: 50-100 MG ORALLY FRO 10 DAYS ON ALTERNATING DAYS WITH PACLITAXEL TREATMENTS (280 MG)
     Route: 048
  9. COUMADIN [Concomitant]
     Route: 048
     Dates: start: 20041216
  10. DURAGESIC PATCH [Concomitant]
     Route: 062
     Dates: start: 20050101
  11. REGLAN [Concomitant]
     Dosage: 10 MG AS NEEDED EVERY 6 TO 8 HOURS
     Route: 048
  12. ZOFRAN [Concomitant]
     Dosage: ADMINISTERED W/ ETOPOSIDE
     Route: 048
  13. NEULASTA [Concomitant]
     Dosage: ADMINISTERED AFTER EACH TREATMENT
     Route: 058
     Dates: start: 20050401

REACTIONS (2)
  - NEUROPATHY [None]
  - SUPERIOR VENA CAVAL OCCLUSION [None]
